FAERS Safety Report 14673049 (Version 1)
Quarter: 2018Q1

REPORT INFORMATION
  Report Type: Spontaneous
  Country: JP (occurrence: JP)
  Receive Date: 20180323
  Receipt Date: 20180323
  Transmission Date: 20180509
  Serious: Yes (Other)
  Sender: FDA-Public Use
  Company Number: PHHY2018JP039617

PATIENT
  Age: 63 Year
  Sex: Male

DRUGS (2)
  1. GLYCERIN. [Concomitant]
     Active Substance: GLYCERIN
     Indication: DURAL ARTERIOVENOUS FISTULA
     Dosage: 400 ML, UNK
     Route: 065
  2. BETAMETHASONE. [Suspect]
     Active Substance: BETAMETHASONE
     Indication: DURAL ARTERIOVENOUS FISTULA
     Dosage: 4 MG, UNK
     Route: 042

REACTIONS (7)
  - Dysaesthesia [Unknown]
  - Condition aggravated [Unknown]
  - Respiratory failure [Recovering/Resolving]
  - Quadriparesis [Unknown]
  - Muscular weakness [Recovered/Resolved with Sequelae]
  - Product use in unapproved indication [Unknown]
  - Dural arteriovenous fistula [Unknown]
